FAERS Safety Report 6615097-8 (Version None)
Quarter: 2010Q1

REPORT INFORMATION
  Report Type: 
  Country: None (occurrence: None)
  Receive Date: 20100226
  Receipt Date: 20100215
  Transmission Date: 20100710
  Serious: Yes (Hospitalization)
  Sender: FDA-Public Use
  Company Number: 1000009230

PATIENT
  Sex: Female

DRUGS (2)
  1. MEMANTINE HCL [Suspect]
     Dosage: ORAL
     Route: 048
  2. ACETYLCHLOLINESTERASE INHIBITOR [Concomitant]

REACTIONS (1)
  - HYPERCAPNIA [None]
